FAERS Safety Report 18933431 (Version 1)
Quarter: 2021Q1

REPORT INFORMATION
  Report Type: Spontaneous
  Country: US (occurrence: US)
  Receive Date: 20210223
  Receipt Date: 20210223
  Transmission Date: 20210420
  Serious: Yes (Death)
  Sender: FDA-Public Use
  Company Number: None

PATIENT
  Age: 83 Year
  Sex: Male

DRUGS (2)
  1. MYCOPHENOLATE MOFETIL 250MG CAPSULE [Suspect]
     Active Substance: MYCOPHENOLATE MOFETIL
     Indication: RENAL TRANSPLANT
     Dosage: ?          OTHER DOSE:1 CAP ;?
     Route: 048
     Dates: start: 20200711
  2. TACROLIMUS 0.5MG CAP [Suspect]
     Active Substance: TACROLIMUS
     Indication: RENAL TRANSPLANT
     Dosage: ?          OTHER DOSE:1 CAP;?
     Route: 048
     Dates: start: 20200711

REACTIONS (1)
  - Death [None]

NARRATIVE: CASE EVENT DATE: 20210220
